FAERS Safety Report 24225325 (Version 1)
Quarter: 2024Q3

REPORT INFORMATION
  Report Type: Other
  Country: CA (occurrence: CA)
  Receive Date: 20240820
  Receipt Date: 20240820
  Transmission Date: 20241017
  Serious: Yes (Hospitalization, Other)
  Sender: APOTEX
  Company Number: CA-APOTEX-2024AP009332

PATIENT
  Age: 82 Year
  Sex: Female

DRUGS (6)
  1. CLOPIDOGREL [Suspect]
     Active Substance: CLOPIDOGREL BISULFATE
     Indication: Product used for unknown indication
     Dosage: UNK
     Route: 065
  2. ERELZI [Suspect]
     Active Substance: ETANERCEPT-SZZS
     Indication: Rheumatoid arthritis
     Dosage: 50 MILLIGRAM, Q.WK.
     Route: 058
  3. AMBRISENTAN [Suspect]
     Active Substance: AMBRISENTAN
     Indication: Pulmonary arterial hypertension
     Dosage: 5 MILLIGRAM, QD
     Route: 065
  4. DESOXIMETASONE [Concomitant]
     Active Substance: DESOXIMETASONE
     Indication: Product used for unknown indication
     Dosage: UNK,
     Route: 065
  5. DESOXIMETASONE [Concomitant]
     Active Substance: DESOXIMETASONE
     Dosage: UNK, BID
     Route: 065
  6. DESOXIMETASONE [Concomitant]
     Active Substance: DESOXIMETASONE
     Dosage: UNK,
     Route: 065

REACTIONS (31)
  - Angioplasty [Recovered/Resolved]
  - COVID-19 [Recovered/Resolved]
  - Ear pain [Recovered/Resolved]
  - Eating disorder [Recovered/Resolved]
  - Facial pain [Recovered/Resolved]
  - Frequent bowel movements [Recovered/Resolved]
  - General physical health deterioration [Recovered/Resolved]
  - Toothache [Recovered/Resolved]
  - Insomnia [Recovered/Resolved]
  - Malaise [Recovered/Resolved]
  - Nasal discharge discolouration [Recovered/Resolved]
  - Pain assessment [Recovered/Resolved]
  - Pain in extremity [Recovered/Resolved]
  - Pain in jaw [Recovered/Resolved]
  - Psoriasis [Recovered/Resolved]
  - Sinusitis [Recovered/Resolved]
  - Suture removal [Recovered/Resolved]
  - Syncope [Recovered/Resolved]
  - Toe amputation [Recovered/Resolved]
  - Visual impairment [Recovered/Resolved]
  - Wrong technique in product usage process [Recovered/Resolved]
  - Nausea [Recovered/Resolved]
  - Pain [Recovered/Resolved]
  - Vomiting [Recovered/Resolved]
  - Back pain [Recovered/Resolved]
  - Abdominal pain [Recovered/Resolved]
  - Injection site bruising [Recovered/Resolved]
  - Gastric haemorrhage [Recovered/Resolved]
  - Arthritis [Recovered/Resolved]
  - Arthralgia [Recovered/Resolved]
  - Drug ineffective [Recovered/Resolved]
